FAERS Safety Report 10172352 (Version 2)
Quarter: 2014Q2

REPORT INFORMATION
  Report Type: Spontaneous
  Country: JP (occurrence: JP)
  Receive Date: 20140515
  Receipt Date: 20140627
  Transmission Date: 20141212
  Serious: Yes (Hospitalization)
  Sender: FDA-Public Use
  Company Number: JP-JNJFOC-20140507047

PATIENT
  Age: 71 Year
  Sex: Female
  Weight: 70.76 kg

DRUGS (9)
  1. SOVRIAD [Suspect]
     Indication: CHRONIC HEPATITIS C
     Route: 048
     Dates: start: 20140410, end: 20140506
  2. PEGASYS [Suspect]
     Indication: CHRONIC HEPATITIS C
     Route: 058
     Dates: start: 20140410, end: 20140428
  3. COPEGUS [Suspect]
     Indication: CHRONIC HEPATITIS C
     Route: 048
     Dates: start: 20140410, end: 20140506
  4. OLMETEC [Concomitant]
     Indication: HYPERTENSION
     Route: 048
  5. CALBLOCK [Concomitant]
     Indication: HYPERTENSION
     Route: 048
  6. IMIDAFENACIN [Concomitant]
     Indication: HYPERTONIC BLADDER
     Route: 048
  7. ZOLPIDEM TARTRATE [Concomitant]
     Indication: INSOMNIA
     Route: 048
  8. GASCON [Concomitant]
     Indication: GASTRITIS
     Route: 048
  9. BERIZYM [Concomitant]
     Indication: DYSPEPSIA
     Route: 048

REACTIONS (1)
  - Chorea [Recovering/Resolving]
